FAERS Safety Report 10230604 (Version 2)
Quarter: 2014Q2

REPORT INFORMATION
  Report Type: Spontaneous
  Country: US (occurrence: US)
  Receive Date: 20140611
  Receipt Date: 20140611
  Transmission Date: 20141212
  Serious: No
  Sender: FDA-Public Use
  Company Number: US-INCYTE CORPORATION-2014IN001141

PATIENT
  Sex: 0

DRUGS (6)
  1. JAKAFI [Suspect]
     Indication: MYELOFIBROSIS
     Dosage: 15 MG, BID
     Route: 048
     Dates: start: 20140206, end: 2014
  2. HYDROXYUREA [Concomitant]
  3. ALLOPURINOL [Concomitant]
  4. PREDNISONE [Concomitant]
  5. PAXIL                              /00830802/ [Concomitant]
  6. REMERON [Concomitant]

REACTIONS (2)
  - Adverse event [Unknown]
  - Platelet count decreased [Not Recovered/Not Resolved]
